FAERS Safety Report 14347746 (Version 3)
Quarter: 2019Q1

REPORT INFORMATION
  Report Type: Spontaneous
  Country: US (occurrence: US)
  Receive Date: 20180103
  Receipt Date: 20190307
  Transmission Date: 20190417
  Serious: No
  Sender: FDA-Public Use
  Company Number: US-PFIZER INC-2017554998

PATIENT
  Age: 62 Year
  Sex: Female
  Weight: 63.5 kg

DRUGS (2)
  1. ATROPINE SULFATE/DIPHENOXYLATE HYDROCHLORIDE [Suspect]
     Active Substance: ATROPINE SULFATE\DIPHENOXYLATE HYDROCHLORIDE
     Indication: COLITIS
     Dosage: UNK 2.5/0.25 TABLET AS NEEDED AFTER EACH LOOSE STOOL)
     Dates: end: 20171023
  2. ATROPINE SULFATE/DIPHENOXYLATE HYDROCHLORIDE [Suspect]
     Active Substance: ATROPINE SULFATE\DIPHENOXYLATE HYDROCHLORIDE
     Indication: DIARRHOEA
     Dosage: UNK, DAILY, (2.5 UP TO 8 A DAY)
     Dates: start: 20171016, end: 20171116

REACTIONS (3)
  - Drug ineffective [Recovered/Resolved with Sequelae]
  - Treatment noncompliance [None]
  - Herpes zoster [None]

NARRATIVE: CASE EVENT DATE: 20171016
